FAERS Safety Report 9955623 (Version 2)
Quarter: 2014Q1

REPORT INFORMATION
  Report Type: Spontaneous
  Country: US (occurrence: US)
  Receive Date: 20140304
  Receipt Date: 20140304
  Transmission Date: 20141002
  Serious: No
  Sender: FDA-Public Use
  Company Number: US-ABBVIE-12P-163-0918763-00

PATIENT
  Sex: Female

DRUGS (1)
  1. HUMIRA [Suspect]
     Indication: PRODUCT USED FOR UNKNOWN INDICATION
     Route: 058

REACTIONS (6)
  - Systemic lupus erythematosus [Unknown]
  - Rash macular [Unknown]
  - Tuberculosis [Unknown]
  - Fatigue [Unknown]
  - Psoriasis [Unknown]
  - Liver injury [Unknown]
